FAERS Safety Report 8777264 (Version 1)
Quarter: 2012Q4

REPORT INFORMATION
  Report Type: 
  Country: FR (occurrence: FR)
  Receive Date: 20120911
  Receipt Date: 20120911
  Transmission Date: 20130627
  Serious: Yes (Hospitalization)
  Sender: FDA-Public Use
  Company Number: FR-GILEAD-2012-0060943

PATIENT
  Age: 47 Year
  Sex: Male

DRUGS (1)
  1. VIREAD [Suspect]
     Indication: HEPATITIS B
     Dosage: 245 mg, QD
     Route: 048
     Dates: start: 200911

REACTIONS (1)
  - Guillain-Barre syndrome [Recovering/Resolving]
